FAERS Safety Report 26123325 (Version 1)
Quarter: 2025Q4

REPORT INFORMATION
  Report Type: Report from Study
  Country: EU (occurrence: EU)
  Receive Date: 20251204
  Receipt Date: 20251204
  Transmission Date: 20260117
  Serious: Yes (Other)
  Sender: EMD SERONO INC
  Company Number: EU-Merck Healthcare KGaA-2025061432

PATIENT
  Age: 60 Year
  Sex: Female

DRUGS (2)
  1. REBIF [Suspect]
     Active Substance: INTERFERON BETA-1A
     Indication: Product used for unknown indication
     Dates: start: 201403
  2. REBIF [Suspect]
     Active Substance: INTERFERON BETA-1A

REACTIONS (3)
  - Skin cancer [Unknown]
  - Gait disturbance [Not Recovered/Not Resolved]
  - Mobility decreased [Unknown]
